FAERS Safety Report 4596382-0 (Version None)
Quarter: 2005Q1

REPORT INFORMATION
  Report Type: 
  Country: None (occurrence: None)
  Receive Date: 20050228
  Receipt Date: 20050214
  Transmission Date: 20050727
  Serious: Yes (Hospitalization)
  Sender: FDA-Public Use
  Company Number: 2005031486

PATIENT
  Age: 22 Month
  Sex: Male

DRUGS (2)
  1. ALDACTONE [Suspect]
     Indication: HYPERTROPHIC CARDIOMYOPATHY
     Dosage: 12.5 MG (INTERVAL: EVERY DAY); ORAL
     Route: 048
     Dates: start: 20040713
  2. FUROSEMIDE [Suspect]
     Indication: HYPERTROPHIC CARDIOMYOPATHY
     Dosage: 5 MG (INTERVAL; EVERY DAY); ORAL
     Route: 048
     Dates: start: 20030103

REACTIONS (2)
  - FEMORAL NECK FRACTURE [None]
  - PATHOLOGICAL FRACTURE [None]
